FAERS Safety Report 24958155 (Version 1)
Quarter: 2025Q1

REPORT INFORMATION
  Report Type: Spontaneous
  Country: US (occurrence: US)
  Receive Date: 20250212
  Receipt Date: 20250212
  Transmission Date: 20250408
  Serious: No
  Sender: APOTEX
  Company Number: US-APOTEX-2025AP001901

PATIENT
  Age: 75 Year
  Sex: Female

DRUGS (1)
  1. IMATINIB [Suspect]
     Active Substance: IMATINIB
     Indication: Advanced systemic mastocytosis
     Dosage: 400 MILLIGRAM, QD
     Route: 065

REACTIONS (2)
  - Anaemia [Not Recovered/Not Resolved]
  - Drug ineffective [Unknown]
